FAERS Safety Report 7994669-2 (Version None)
Quarter: 2011Q4

REPORT INFORMATION
  Report Type: 
  Country: None (occurrence: None)
  Receive Date: 20111220
  Receipt Date: 20111209
  Transmission Date: 20120403
  Serious: Yes (Life-Threatening)
  Sender: FDA-Public Use
  Company Number: GB-VERTEX PHARMACEUTICALS INC.-AE-2011-002496

PATIENT
  Sex: Male
  Weight: 64 kg

DRUGS (13)
  1. VALACICLOVIR [Concomitant]
     Indication: PENILE ULCERATION
     Dates: start: 20110728, end: 20110823
  2. FUSIDIC ACID [Concomitant]
     Indication: CHEILITIS
     Dates: start: 20110825
  3. METOCLOPRAMIDE [Concomitant]
     Dates: start: 20110707, end: 20110707
  4. CITALOPRAM [Concomitant]
     Indication: DEPRESSION
     Dates: start: 20110630, end: 20110714
  5. CITALOPRAM [Concomitant]
     Dates: start: 20110714
  6. PEGASYS [Suspect]
     Indication: HEPATITIS C
     Route: 058
     Dates: start: 20110602, end: 20111118
  7. ACETAMINOPHEN [Concomitant]
     Dates: start: 20110603
  8. COPEGUS [Suspect]
     Indication: HEPATITIS C
     Dosage: 600MG IN THE MORNING AND 400MG IN THE EVENING
     Route: 048
     Dates: start: 20110602, end: 20111118
  9. CLOTRIMAZOLE [Concomitant]
     Indication: CHEILITIS
     Dates: start: 20110630, end: 20110730
  10. ANUSOL [Concomitant]
     Indication: HAEMORRHOIDS
     Dates: start: 20110728, end: 20110823
  11. MICONAZOLE [Concomitant]
     Indication: CHEILITIS
     Dates: start: 20110825
  12. FORTISIP [Concomitant]
     Indication: WEIGHT DECREASED
     Dates: start: 20110702
  13. VX-950 [Suspect]
     Indication: HEPATITIS C
     Route: 048
     Dates: start: 20110602, end: 20110825

REACTIONS (2)
  - DEPRESSION [None]
  - SUICIDE ATTEMPT [None]
